FAERS Safety Report 4374646-3 (Version None)
Quarter: 2004Q2

REPORT INFORMATION
  Report Type: 
  Country: None (occurrence: None)
  Receive Date: 20040609
  Receipt Date: 20040528
  Transmission Date: 20050107
  Serious: Yes (Other)
  Sender: FDA-Public Use
  Company Number: GB-GLAXOSMITHKLINE-B0334433A

PATIENT
  Sex: Male

DRUGS (4)
  1. PAROXETINE HCL [Suspect]
     Indication: DEPRESSION
     Route: 065
  2. ZOPICLONE [Suspect]
     Route: 065
  3. LIBRIUM [Concomitant]
     Indication: DRUG WITHDRAWAL SYNDROME
     Route: 065
  4. DIHYDROCODEINE [Concomitant]
     Indication: DRUG WITHDRAWAL SYNDROME
     Route: 065

REACTIONS (9)
  - AGGRESSION [None]
  - AMNESIA [None]
  - DEPENDENCE [None]
  - DRUG WITHDRAWAL SYNDROME [None]
  - HEADACHE [None]
  - HOMICIDAL IDEATION [None]
  - NAUSEA [None]
  - NIGHTMARE [None]
  - TREMOR [None]
